FAERS Safety Report 10695383 (Version 2)
Quarter: 2017Q2

REPORT INFORMATION
  Report Type: Spontaneous
  Country: US (occurrence: US)
  Receive Date: 20150107
  Receipt Date: 20170407
  Transmission Date: 20170829
  Serious: Yes (Other)
  Sender: FDA-Public Use
  Company Number: US-JNJFOC-20141220452

PATIENT
  Age: 9 Year
  Sex: Male

DRUGS (6)
  1. INVEGA [Suspect]
     Active Substance: PALIPERIDONE
     Indication: AGGRESSION
     Dosage: VARYING DOSES OF 3MG AND 6MG.
     Route: 048
     Dates: start: 201401, end: 2014
  2. RISPERDAL [Suspect]
     Active Substance: RISPERIDONE
     Indication: AUTISM SPECTRUM DISORDER
     Dosage: VARYING DOSES OF 0.5, 1 AND 2 MG.
     Route: 048
     Dates: start: 200611, end: 200706
  3. RISPERDAL [Suspect]
     Active Substance: RISPERIDONE
     Indication: BIPOLAR DISORDER
     Dosage: VARYING DOSES OF 0.5, 1 AND 2 MG.
     Route: 048
     Dates: start: 200611, end: 200706
  4. INVEGA [Suspect]
     Active Substance: PALIPERIDONE
     Indication: AGGRESSION
     Route: 048
     Dates: start: 201302
  5. INVEGA [Suspect]
     Active Substance: PALIPERIDONE
     Indication: AGGRESSION
     Route: 048
     Dates: start: 201402, end: 2014
  6. INVEGA [Suspect]
     Active Substance: PALIPERIDONE
     Indication: AGGRESSION
     Dosage: VARYING DOSES OF 3MG AND 6MG.
     Route: 048
     Dates: start: 2014, end: 201403

REACTIONS (2)
  - Abnormal weight gain [Unknown]
  - Gynaecomastia [Unknown]

NARRATIVE: CASE EVENT DATE: 200705
